FAERS Safety Report 4830119-2 (Version None)
Quarter: 2005Q4

REPORT INFORMATION
  Report Type: 
  Country: None (occurrence: None)
  Receive Date: 20051117
  Receipt Date: 20051104
  Transmission Date: 20060501
  Serious: Yes (Disabling)
  Sender: FDA-Public Use
  Company Number: 2005GB02148

PATIENT
  Age: 55 Year
  Sex: Female

DRUGS (1)
  1. ARIMIDEX [Suspect]
     Indication: BREAST CANCER
     Route: 048
     Dates: start: 20040101, end: 20050901

REACTIONS (7)
  - ARTHRALGIA [None]
  - DEPRESSION [None]
  - ECZEMA [None]
  - HERPES SIMPLEX [None]
  - HYPERHIDROSIS [None]
  - INSOMNIA [None]
  - WEIGHT INCREASED [None]
